FAERS Safety Report 4548850-5 (Version None)
Quarter: 2005Q1

REPORT INFORMATION
  Report Type: 
  Country: None (occurrence: None)
  Receive Date: 20041227
  Receipt Date: 20041006
  Transmission Date: 20050727
  Serious: No
  Sender: FDA-Public Use
  Company Number: 04P-163-0276454-00

PATIENT
  Age: 53 Year
  Sex: Female
  Weight: 54.4316 kg

DRUGS (7)
  1. HUMIRA [Suspect]
     Indication: RHEUMATOID ARTHRITIS
     Dosage: 40 MG, 1 IN 2 WK, SUBCUTANEOUS
     Route: 058
     Dates: start: 20040916
  2. METHOTREXATE [Concomitant]
  3. ALPRAZOLAM [Concomitant]
  4. VICODIN [Concomitant]
  5. SERTRALINE HYDROCHLORIDE [Concomitant]
  6. DESIPRAMIDE HCL [Concomitant]
  7. DICYCLOMINE HCL [Concomitant]

REACTIONS (4)
  - CHROMATURIA [None]
  - HYPERHIDROSIS [None]
  - PYREXIA [None]
  - SWELLING [None]
